FAERS Safety Report 24728928 (Version 2)
Quarter: 2025Q3

REPORT INFORMATION
  Report Type: Spontaneous
  Country: AU (occurrence: AU)
  Receive Date: 20241212
  Receipt Date: 20250803
  Transmission Date: 20251021
  Serious: Yes (Hospitalization)
  Sender: ALEXION PHARMACEUTICALS
  Company Number: None

PATIENT
  Age: 36 Year
  Sex: Female

DRUGS (1)
  1. QUETIAPINE FUMARATE [Suspect]
     Active Substance: QUETIAPINE FUMARATE
     Indication: Product used for unknown indication

REACTIONS (7)
  - Joint stiffness [Recovering/Resolving]
  - Rash erythematous [Recovering/Resolving]
  - Physical deconditioning [Recovering/Resolving]
  - Dermatitis allergic [Recovering/Resolving]
  - Palpitations [Recovered/Resolved]
  - Weight increased [Recovering/Resolving]
  - Hypoaesthesia [Recovering/Resolving]
